FAERS Safety Report 6209994-5 (Version None)
Quarter: 2009Q2

REPORT INFORMATION
  Report Type: 
  Country: None (occurrence: None)
  Receive Date: 20090527
  Receipt Date: 20090519
  Transmission Date: 20091009
  Serious: Yes (Other)
  Sender: FDA-Public Use
  Company Number: GXKR2009GB05974

PATIENT
  Age: 30 Year
  Sex: Male

DRUGS (5)
  1. DICLOFENAC (NGX) 9DICLOFENAC) UNKNOWN [Suspect]
     Indication: PROCTALGIA
     Dosage: ORAL
     Route: 048
     Dates: start: 20090503, end: 20090511
  2. METRONIDAZOLE [Suspect]
     Indication: CELLULITIS
     Dosage: ORAL
     Route: 048
     Dates: start: 20090505, end: 20090511
  3. METRONIDAZOLE [Suspect]
     Indication: SUBCUTANEOUS ABSCESS
     Dosage: ORAL
     Route: 048
     Dates: start: 20090505, end: 20090511
  4. ERYTHROMYCIN [Suspect]
     Indication: CELLULITIS
     Dosage: ORAL
     Route: 048
     Dates: start: 20090506, end: 20090507
  5. ERYTHROMYCIN [Suspect]
     Indication: SUBCUTANEOUS ABSCESS
     Dosage: ORAL
     Route: 048
     Dates: start: 20090506, end: 20090507

REACTIONS (3)
  - CELLULITIS [None]
  - HEPATIC ENZYME INCREASED [None]
  - SUBCUTANEOUS ABSCESS [None]
